FAERS Safety Report 4763286-X (Version None)
Quarter: 2005Q3

REPORT INFORMATION
  Report Type: 
  Country: None (occurrence: None)
  Receive Date: 20050908
  Receipt Date: 20050719
  Transmission Date: 20060218
  Serious: Yes (Hospitalization)
  Sender: FDA-Public Use
  Company Number: JP-ABBOTT-05P-087-0306168-00

PATIENT
  Age: 72 Year
  Sex: Male

DRUGS (4)
  1. LIPIDIL [Suspect]
     Indication: HYPERLIPIDAEMIA
     Route: 048
     Dates: start: 20050531, end: 20050619
  2. ETODOLAC [Suspect]
     Indication: DRUG USE FOR UNKNOWN INDICATION
     Dates: end: 20050619
  3. RANITIDINE HYDROCHLORIDE [Suspect]
     Indication: DRUG USE FOR UNKNOWN INDICATION
     Dates: end: 20050619
  4. ALLOPURINOL [Suspect]
     Indication: DRUG USE FOR UNKNOWN INDICATION
     Dates: end: 20050619

REACTIONS (9)
  - ACUTE RESPIRATORY DISTRESS SYNDROME [None]
  - BLOOD CREATININE INCREASED [None]
  - BRONCHOSTENOSIS [None]
  - FEELING ABNORMAL [None]
  - MYOGLOBINAEMIA [None]
  - RENAL FAILURE [None]
  - RHABDOMYOLYSIS [None]
  - STRIDOR [None]
  - UNEVALUABLE EVENT [None]
